FAERS Safety Report 10595331 (Version 1)
Quarter: 2014Q4

REPORT INFORMATION
  Report Type: Spontaneous
  Country: FR (occurrence: FR)
  Receive Date: 20141120
  Receipt Date: 20141120
  Transmission Date: 20150529
  Serious: Yes (Hospitalization)
  Sender: FDA-Public Use
  Company Number: FR-JNJFOC-20141106587

PATIENT
  Age: 75 Year
  Sex: Female

DRUGS (11)
  1. XARELTO [Suspect]
     Active Substance: RIVAROXABAN
     Indication: CEREBROVASCULAR ACCIDENT PROPHYLAXIS
     Route: 048
     Dates: start: 201309
  2. EPITOMAX [Concomitant]
     Active Substance: TOPIRAMATE
     Route: 065
  3. ALDACTONE [Concomitant]
     Active Substance: SPIRONOLACTONE
     Route: 065
  4. LANSOPRAZOLE. [Concomitant]
     Active Substance: LANSOPRAZOLE
     Route: 065
  5. DUROGESIC [Concomitant]
     Active Substance: FENTANYL
     Route: 062
  6. DAFALGAN [Concomitant]
     Active Substance: ACETAMINOPHEN
     Route: 065
  7. XARELTO [Suspect]
     Active Substance: RIVAROXABAN
     Indication: ATRIAL FIBRILLATION
     Route: 048
     Dates: start: 201309
  8. LYRICA [Concomitant]
     Active Substance: PREGABALIN
     Route: 065
  9. AMLODIPINE [Concomitant]
     Active Substance: AMLODIPINE BESYLATE
     Route: 065
  10. MOVICOL [Concomitant]
     Active Substance: POLYETHYLENE GLYCOL 3350\POTASSIUM CHLORIDE\SODIUM BICARBONATE\SODIUM CHLORIDE
     Route: 065
  11. HEMIGOXINE NATIVELLE [Concomitant]
     Active Substance: DIGOXIN
     Route: 065

REACTIONS (1)
  - Anaemia [Recovering/Resolving]

NARRATIVE: CASE EVENT DATE: 20140805
